FAERS Safety Report 5722511-9 (Version None)
Quarter: 2008Q2

REPORT INFORMATION
  Report Type: 
  Country: None (occurrence: None)
  Receive Date: 20080429
  Receipt Date: 20080423
  Transmission Date: 20081010
  Serious: Yes (Life-Threatening, Hospitalization)
  Sender: FDA-Public Use
  Company Number: JP-ASTRAZENECA-2008SE02111

PATIENT
  Age: 26352 Day
  Sex: Female
  Weight: 54 kg

DRUGS (21)
  1. BLOPRESS [Suspect]
     Indication: CARDIAC FAILURE CHRONIC
     Route: 048
     Dates: start: 20070126, end: 20070222
  2. BLOPRESS [Suspect]
     Route: 048
     Dates: start: 20070223, end: 20070329
  3. BLOPRESS [Suspect]
     Route: 048
     Dates: start: 20070330
  4. ACTOS [Concomitant]
     Indication: DIABETES MELLITUS
     Route: 048
  5. BASEN OD [Concomitant]
     Indication: DIABETES MELLITUS
     Route: 048
     Dates: start: 20080328
  6. ASPIRIN [Concomitant]
     Indication: THROMBOSIS PROPHYLAXIS
     Route: 048
  7. GASTER D [Concomitant]
     Indication: GASTRIC ULCER
     Route: 048
  8. CRESTOR [Concomitant]
     Indication: HYPERLIPIDAEMIA
     Route: 048
     Dates: start: 20080124
  9. LASIX [Concomitant]
     Indication: CARDIAC FAILURE CHRONIC
     Route: 048
  10. FLUITRAN [Concomitant]
     Indication: CARDIAC FAILURE CHRONIC
     Route: 048
  11. LANIRAPID [Concomitant]
     Indication: CARDIAC FAILURE CHRONIC
     Route: 048
  12. PURSENNIDE [Concomitant]
     Indication: CONSTIPATION
     Route: 048
  13. ARTIST [Concomitant]
     Indication: CARDIAC FAILURE CHRONIC
     Route: 048
     Dates: start: 20071025
  14. MEDET [Concomitant]
     Indication: DIABETES MELLITUS
     Route: 048
  15. AMARYL [Concomitant]
     Indication: DIABETES MELLITUS
     Route: 048
     Dates: start: 20071025
  16. URINORM [Concomitant]
     Indication: HYPERURICAEMIA
     Route: 048
     Dates: start: 20061218
  17. EPADEL S [Concomitant]
     Indication: HYPERLIPIDAEMIA
     Route: 048
     Dates: start: 20070531
  18. HALCION [Concomitant]
     Indication: INSOMNIA
     Route: 048
  19. AMIODARONE HCL [Concomitant]
     Indication: CARDIAC FAILURE CHRONIC
     Route: 048
     Dates: start: 20080307
  20. PATANOL [Concomitant]
     Indication: CATARACT
     Route: 047
     Dates: start: 20071013
  21. FLUMETHOLON [Concomitant]
     Indication: CATARACT
     Route: 047
     Dates: start: 20071013

REACTIONS (1)
  - VENTRICULAR TACHYCARDIA [None]
